FAERS Safety Report 9050593 (Version 1)
Quarter: 2013Q1

REPORT INFORMATION
  Report Type: Spontaneous
  Country: FR (occurrence: FR)
  Receive Date: 20130205
  Receipt Date: 20130205
  Transmission Date: 20140127
  Serious: Yes (Other)
  Sender: FDA-Public Use
  Company Number: FR-CELGENEUS-056-21880-13014465

PATIENT
  Age: 63 None
  Sex: Female

DRUGS (6)
  1. REVLIMID [Suspect]
     Indication: PLASMA CELL MYELOMA
     Route: 048
     Dates: start: 20120221
  2. REVLIMID [Suspect]
     Route: 048
     Dates: end: 20121030
  3. REVLIMID [Suspect]
     Route: 048
  4. ALKERAN [Suspect]
     Indication: PLASMA CELL MYELOMA
     Route: 048
     Dates: start: 20120221, end: 20121030
  5. PREDNISONE [Suspect]
     Indication: PLASMA CELL MYELOMA
     Route: 048
     Dates: start: 20120221, end: 20121031
  6. IMMUNOGLOBULINS [Concomitant]
     Indication: CAPILLARY LEAK SYNDROME
     Route: 065

REACTIONS (1)
  - Rectal adenocarcinoma [Not Recovered/Not Resolved]
